FAERS Safety Report 23335568 (Version 1)
Quarter: 2023Q4

REPORT INFORMATION
  Report Type: Spontaneous
  Country: ES (occurrence: ES)
  Receive Date: 20231225
  Receipt Date: 20231225
  Transmission Date: 20240110
  Serious: Yes (Life-Threatening, Hospitalization, Other)
  Sender: FDA-Public Use
  Company Number: None

PATIENT
  Age: 82 Year
  Sex: Male

DRUGS (4)
  1. DILTIAZEM HYDROCHLORIDE [Suspect]
     Active Substance: DILTIAZEM HYDROCHLORIDE
     Indication: Hypertension
     Dosage: 30 MG, QD (1D) 30 MG 1-0-0
     Route: 048
     Dates: start: 20111212, end: 20231018
  2. IRBESARTAN [Suspect]
     Active Substance: IRBESARTAN
     Indication: Hypertension
     Dosage: 300 MG, QD (1D) 300 MG 0-0-1
     Route: 048
     Dates: start: 20221110
  3. SPIRONOLACTONE [Suspect]
     Active Substance: SPIRONOLACTONE
     Indication: Chronic kidney disease
     Dosage: 12.5 MG, QD (1D) 25 MG 0-1/2-0
     Route: 048
     Dates: start: 20220819, end: 20231018
  4. TIMOLOL MALEATE [Suspect]
     Active Substance: TIMOLOL MALEATE
     Indication: Glaucoma
     Dosage: UNK
     Route: 031
     Dates: start: 20180117

REACTIONS (2)
  - Atrial standstill [Recovered/Resolved]
  - Hyperkalaemia [Recovered/Resolved]
